FAERS Safety Report 18425886 (Version 1)
Quarter: 2020Q4

REPORT INFORMATION
  Report Type: Spontaneous
  Country: RU (occurrence: RU)
  Receive Date: 20201026
  Receipt Date: 20201026
  Transmission Date: 20210114
  Serious: Yes (Death, Other)
  Sender: FDA-Public Use
  Company Number: RU-PFIZER INC-2020411967

PATIENT
  Age: 23 Year
  Sex: Female

DRUGS (1)
  1. INOTUZUMAB OZOGAMICIN [Suspect]
     Active Substance: INOTUZUMAB OZOGAMICIN
     Dosage: 0.8 MG/M2 D1 THEN 0.5 MG/M2 D8 THEN 0.5 MG/M2 D15
     Dates: start: 20170616

REACTIONS (14)
  - Neutropenia [Recovered/Resolved]
  - Graft versus host disease [Recovered/Resolved]
  - Obliterative bronchiolitis [Recovered/Resolved]
  - Graft versus host disease [Unknown]
  - Respiratory failure [Unknown]
  - Subcutaneous emphysema [Unknown]
  - Death [Fatal]
  - Transplant dysfunction [Unknown]
  - Pneumonia [Unknown]
  - Thrombocytopenia [Recovered/Resolved]
  - Sepsis [Unknown]
  - Total lung capacity decreased [Recovered/Resolved]
  - Pseudomonas infection [Unknown]
  - Pneumomediastinum [Unknown]

NARRATIVE: CASE EVENT DATE: 20170921
